FAERS Safety Report 25777470 (Version 1)
Quarter: 2025Q3

REPORT INFORMATION
  Report Type: Other
  Country: CN (occurrence: CN)
  Receive Date: 20250909
  Receipt Date: 20250909
  Transmission Date: 20251020
  Serious: Yes (Other)
  Sender: DEXCEL LTD.
  Company Number: CN-DEXPHARM-2025-4515

PATIENT
  Age: 77 Year
  Sex: Female

DRUGS (5)
  1. PANTOPRAZOLE [Suspect]
     Active Substance: PANTOPRAZOLE
     Indication: Melaena
  2. VANCOMYCIN [Concomitant]
     Active Substance: VANCOMYCIN
  3. METRONIDAZOLE [Concomitant]
     Active Substance: METRONIDAZOLE
  4. SOMATOSTATIN [Suspect]
     Active Substance: SOMATOSTATIN
     Indication: Melaena
  5. ASPIRIN [Suspect]
     Active Substance: ASPIRIN
     Indication: Cerebral infarction

REACTIONS (3)
  - Haematochezia [Recovered/Resolved]
  - Lower gastrointestinal haemorrhage [Recovered/Resolved]
  - Clostridium difficile colitis [Recovered/Resolved]
